FAERS Safety Report 24195398 (Version 1)
Quarter: 2024Q3

REPORT INFORMATION
  Report Type: Spontaneous
  Country: FR (occurrence: FR)
  Receive Date: 20240809
  Receipt Date: 20240809
  Transmission Date: 20241016
  Serious: Yes (Hospitalization)
  Sender: GE HEALTHCARE
  Company Number: None

PATIENT
  Age: 79 Year
  Sex: Male
  Weight: 58.6 kg

DRUGS (4)
  1. OMNIPAQUE [Interacting]
     Active Substance: IOHEXOL
     Indication: Computerised tomogram
     Dosage: 1 DF, TOTAL
     Route: 042
     Dates: start: 20240718, end: 20240718
  2. METFORMIN HYDROCHLORIDE [Interacting]
     Active Substance: METFORMIN HYDROCHLORIDE
     Indication: Diabetes mellitus
     Dosage: 700 MG, BID
     Route: 042
     Dates: start: 20240718
  3. GENTAMICIN [Suspect]
     Active Substance: GENTAMICIN
     Indication: Campylobacter bacteraemia
     Dosage: 3 MG/KG, QD
     Route: 042
     Dates: start: 20240718, end: 20240720
  4. AMOXICILLIN [Suspect]
     Active Substance: AMOXICILLIN
     Indication: Campylobacter bacteraemia
     Dosage: 2 G, Q4H
     Route: 042
     Dates: start: 20240718

REACTIONS (4)
  - Lactic acidosis [Recovered/Resolved]
  - Renal tubular disorder [Recovered/Resolved]
  - Drug interaction [Recovered/Resolved]
  - Acute kidney injury [Recovered/Resolved]

NARRATIVE: CASE EVENT DATE: 20240722
